FAERS Safety Report 22046611 (Version 2)
Quarter: 2023Q1

REPORT INFORMATION
  Report Type: Spontaneous
  Country: EG (occurrence: EG)
  Receive Date: 20230228
  Receipt Date: 20230307
  Transmission Date: 20230417
  Serious: Yes (Life-Threatening, Other)
  Sender: FDA-Public Use
  Company Number: EG-NOVOPROD-1025872

PATIENT
  Sex: Female
  Weight: 95 kg

DRUGS (8)
  1. INSULIN HUMAN [Suspect]
     Active Substance: INSULIN HUMAN
     Indication: Diabetes mellitus
     Dosage: 70 IU, QD (30 IU IN MORNING - 40 IU/NIGHT)
     Route: 058
  2. GLIPTUS [Concomitant]
     Indication: Diabetes mellitus
     Dosage: 1 TAB IN MORNING AND 1 TAB IN NIGHT
     Route: 048
  3. MELLITOFIX MET [Concomitant]
     Indication: Diabetes mellitus
     Dosage: 1 TABLET BEFORE LUNCH
     Route: 048
  4. CILOSTAZOL [Concomitant]
     Active Substance: CILOSTAZOL
     Indication: Thrombosis
     Dosage: DOSE 1 MORNING -1 NIGHT
     Route: 048
  5. NEBIVOLOL [Concomitant]
     Active Substance: NEBIVOLOL
     Indication: Hypertension
     Dosage: 2 TABLET IN NIGHT
     Route: 048
  6. ERASTAPEX [Concomitant]
     Indication: Hypertension
     Dosage: 1 TABLET MORNING BEFORE MEALS
     Route: 048
  7. BENFOTIAMINE\CYANOCOBALAMIN\PYRIDOXINE HYDROCHLORIDE [Concomitant]
     Active Substance: BENFOTIAMINE\CYANOCOBALAMIN\PYRIDOXINE HYDROCHLORIDE
     Indication: Diabetic neuropathy
     Dosage: 1 TABLET/ DAY
     Route: 048
  8. CYANOCOBALAMIN [Concomitant]
     Active Substance: CYANOCOBALAMIN
     Indication: Diabetic neuropathy
     Dosage: ONCE WEEKLY DOSE

REACTIONS (1)
  - Coronary artery disease [Recovered/Resolved]
